FAERS Safety Report 11451796 (Version 3)
Quarter: 2022Q1

REPORT INFORMATION
  Report Type: Spontaneous
  Country: US (occurrence: US)
  Receive Date: 20150903
  Receipt Date: 20220323
  Transmission Date: 20220423
  Serious: Yes (Other)
  Sender: FDA-Public Use
  Company Number: US-JNJFOC-20150823076

PATIENT
  Age: 4 Year
  Sex: Male

DRUGS (6)
  1. RISPERDAL [Suspect]
     Active Substance: RISPERIDONE
     Indication: Aggression
     Route: 048
     Dates: start: 2012, end: 2013
  2. RISPERDAL [Suspect]
     Active Substance: RISPERIDONE
     Indication: Affective disorder
     Route: 048
     Dates: end: 2014
  3. RISPERDAL [Suspect]
     Active Substance: RISPERIDONE
     Indication: Irritability
     Dosage: 0.25 MG, 0.5 MG TWICE A DAY AND 1 MG
     Route: 048
  4. RISPERDAL [Suspect]
     Active Substance: RISPERIDONE
     Route: 048
     Dates: start: 2014
  5. INVEGA [Suspect]
     Active Substance: PALIPERIDONE
     Indication: Affective disorder
     Route: 048
     Dates: start: 2013
  6. INVEGA [Suspect]
     Active Substance: PALIPERIDONE
     Indication: Aggression
     Dosage: 1.5 MG BY MOUTH DAILY, 3 MG BY MOUTH EVERY MORNING AND 6 MG BY MOUTH EVERY MORNING
     Route: 048

REACTIONS (7)
  - Diabetes mellitus [Unknown]
  - Obesity [Unknown]
  - Gynaecomastia [Unknown]
  - Sedation [Recovering/Resolving]
  - Drug ineffective [Unknown]
  - Off label use [Unknown]
  - Product use issue [Unknown]

NARRATIVE: CASE EVENT DATE: 20120101
